FAERS Safety Report 24240474 (Version 3)
Quarter: 2024Q3

REPORT INFORMATION
  Report Type: Spontaneous
  Country: US (occurrence: US)
  Receive Date: 20240822
  Receipt Date: 20240927
  Transmission Date: 20241016
  Serious: Yes (Hospitalization, Other)
  Sender: BAUSCH AND LOMB
  Company Number: US-BAUSCHBL-2024BNL031996

PATIENT
  Age: 37 Year
  Sex: Male
  Weight: 77.11 kg

DRUGS (4)
  1. MIEBO [Suspect]
     Active Substance: PERFLUOROHEXYLOCTANE
     Indication: Dry eye
     Route: 065
     Dates: start: 20240712
  2. LOTEPREDNOL [Concomitant]
     Active Substance: LOTEPREDNOL
     Indication: Product used for unknown indication
     Dosage: LOTEPREDNOL 4/DAY FOR THREE WEEKS
     Route: 065
     Dates: start: 20240715
  3. LOTEPREDNOL [Concomitant]
     Active Substance: LOTEPREDNOL
     Dosage: LOTEPREDNOL 2X/DAY FOR 1 WEEK
     Route: 065
     Dates: start: 20240715
  4. ERYTHROMYCIN [Concomitant]
     Active Substance: ERYTHROMYCIN
     Indication: Product used for unknown indication
     Dosage: ERYTHROMYCIN OPHTHALMIC OINTMENT FOR 7 DAYS BEGINNING AUGUST 8
     Route: 065
     Dates: start: 20240808

REACTIONS (14)
  - Scleral oedema [Unknown]
  - Eye pain [Unknown]
  - Conjunctival hyperaemia [Unknown]
  - Ocular hyperaemia [Unknown]
  - Vision blurred [Not Recovered/Not Resolved]
  - Diplopia [Not Recovered/Not Resolved]
  - Headache [Unknown]
  - Rhinorrhoea [Unknown]
  - Photophobia [Not Recovered/Not Resolved]
  - Eye swelling [Unknown]
  - Periorbital oedema [Unknown]
  - Loss of personal independence in daily activities [Unknown]
  - Erythema [Unknown]
  - Localised oedema [Unknown]

NARRATIVE: CASE EVENT DATE: 20240712
